FAERS Safety Report 14101164 (Version 1)
Quarter: 2017Q4

REPORT INFORMATION
  Report Type: Spontaneous
  Country: US (occurrence: None)
  Receive Date: 20171017
  Receipt Date: 20171017
  Transmission Date: 20180321
  Serious: No
  Sender: FDA-Public Use
  Company Number: None

PATIENT
  Age: 26 Year
  Sex: Female

DRUGS (1)
  1. OPSUMIT [Suspect]
     Active Substance: MACITENTAN
     Indication: PULMONARY ARTERIAL HYPERTENSION
     Route: 048
     Dates: start: 20170926

REACTIONS (7)
  - Dyspnoea [None]
  - Pleurisy [None]
  - Chest pain [None]
  - Oropharyngeal pain [None]
  - Cough [None]
  - Nasal congestion [None]
  - Upper respiratory tract infection [None]

NARRATIVE: CASE EVENT DATE: 20170928
